FAERS Safety Report 5086583-X (Version None)
Quarter: 2006Q3

REPORT INFORMATION
  Report Type: 
  Country: None (occurrence: None)
  Receive Date: 20060823
  Receipt Date: 20060724
  Transmission Date: 20061208
  Serious: Yes (Life-Threatening)
  Sender: FDA-Public Use
  Company Number: NL-GLAXOSMITHKLINE-B0432292A

PATIENT
  Age: 6 Year
  Sex: Male
  Weight: 22 kg

DRUGS (3)
  1. PHENETHICILLIN POTASSIUM [Suspect]
     Indication: PNEUMONIA
     Dosage: 125MG THREE TIMES PER DAY
     Route: 048
     Dates: start: 20051212, end: 20051224
  2. ZITHROMAX [Suspect]
     Route: 065
  3. AMOXICILLIN [Suspect]
     Route: 065

REACTIONS (2)
  - BODY TEMPERATURE DECREASED [None]
  - HYPOTHERMIA [None]
